FAERS Safety Report 10302888 (Version 1)
Quarter: 2014Q3

REPORT INFORMATION
  Report Type: Spontaneous
  Country: US (occurrence: US)
  Receive Date: 20140714
  Receipt Date: 20140714
  Transmission Date: 20150326
  Serious: No
  Sender: FDA-Public Use
  Company Number: US-ASTELLAS-2014US003522

PATIENT
  Sex: Female

DRUGS (1)
  1. MYRBETRIQ [Suspect]
     Active Substance: MIRABEGRON
     Indication: CYSTITIS INTERSTITIAL
     Dosage: 50 MG, UID/QD (25 MG 2 TABLETS ONCE DAILY)
     Route: 048
     Dates: start: 201403

REACTIONS (3)
  - Off label use [Unknown]
  - Intentional product misuse [Unknown]
  - Condition aggravated [Unknown]
